FAERS Safety Report 16204612 (Version 1)
Quarter: 2019Q2

REPORT INFORMATION
  Report Type: Spontaneous
  Country: NL (occurrence: NL)
  Receive Date: 20190416
  Receipt Date: 20190416
  Transmission Date: 20190711
  Serious: Yes (Other)
  Sender: FDA-Public Use
  Company Number: NL-009507513-1904NLD004625

PATIENT
  Sex: Female

DRUGS (9)
  1. EFEXOR [Suspect]
     Active Substance: VENLAFAXINE HYDROCHLORIDE
     Dosage: UNK,
  2. SEROXAT [Suspect]
     Active Substance: PAROXETINE HYDROCHLORIDE
     Dosage: UNK,
  3. WELLBUTRIN [Suspect]
     Active Substance: BUPROPION HYDROCHLORIDE
     Dosage: UNK,
  4. PROZAC [Suspect]
     Active Substance: FLUOXETINE HYDROCHLORIDE
     Dosage: UNK,
  5. SAROTEX [Suspect]
     Active Substance: AMITRIPTYLINE HYDROCHLORIDE
     Dosage: UNK,
  6. REMERON [Suspect]
     Active Substance: MIRTAZAPINE
     Dosage: UNK,
  7. SEROQUEL [Suspect]
     Active Substance: QUETIAPINE FUMARATE
     Dosage: UNK,
     Route: 048
  8. CIPRAMIL (CITALOPRAM HYDROBROMIDE) [Suspect]
     Active Substance: CITALOPRAM HYDROBROMIDE
     Dosage: UNK,
  9. ZOLOFT [Suspect]
     Active Substance: SERTRALINE HYDROCHLORIDE
     Dosage: UNK,

REACTIONS (11)
  - Weight increased [Unknown]
  - Headache [Unknown]
  - Suicidal ideation [Unknown]
  - Impaired self-care [Unknown]
  - Nausea [Unknown]
  - Homicidal ideation [Unknown]
  - Irritability [Unknown]
  - Libido decreased [Unknown]
  - Aggression [Unknown]
  - Weight decreased [Unknown]
  - Insomnia [Unknown]
